FAERS Safety Report 8774702 (Version 1)
Quarter: 2012Q4

REPORT INFORMATION
  Report Type: 
  Country: AU (occurrence: AU)
  Receive Date: 20120910
  Receipt Date: 20120910
  Transmission Date: 20130627
  Serious: Yes (Hospitalization, Other)
  Sender: FDA-Public Use
  Company Number: AU-MYLANLABS-2012S1017656

PATIENT
  Age: 71 Year
  Sex: Female

DRUGS (10)
  1. GABAPENTIN [Suspect]
     Route: 048
     Dates: start: 20120717, end: 20120717
  2. GABAPENTIN [Suspect]
     Route: 048
     Dates: start: 20120718
  3. GABAPENTIN [Suspect]
     Route: 048
     Dates: start: 20120718
  4. RAMIPRIL [Concomitant]
     Indication: HYPERTENSION
  5. HORSERADISH [Concomitant]
  6. GARLIC [Concomitant]
  7. VITAMIN C [Concomitant]
  8. GLUCOSAMINE [Concomitant]
  9. CENTRUM [Concomitant]
  10. CENTRUM [Concomitant]

REACTIONS (5)
  - Insomnia [Not Recovered/Not Resolved]
  - Fatigue [Not Recovered/Not Resolved]
  - Hospitalisation [Recovered/Resolved]
  - Musculoskeletal stiffness [Recovered/Resolved]
  - Chest pain [Recovered/Resolved]
